FAERS Safety Report 5739496-1 (Version None)
Quarter: 2008Q2

REPORT INFORMATION
  Report Type: 
  Country: None (occurrence: None)
  Receive Date: 20080515
  Receipt Date: 20080512
  Transmission Date: 20081010
  Serious: Yes (Other)
  Sender: FDA-Public Use
  Company Number: US-PFIZER INC-2008040833

PATIENT
  Sex: Male
  Weight: 87.1 kg

DRUGS (4)
  1. CELEBREX [Suspect]
     Indication: ARTHRALGIA
     Dates: start: 20080101, end: 20080401
  2. ZOCOR [Concomitant]
  3. ACETYLSALICYLIC ACID SRT [Concomitant]
  4. ALL OTHER THERAPEUTIC PRODUCTS [Concomitant]
     Indication: ARTHRALGIA

REACTIONS (3)
  - HYPERSENSITIVITY [None]
  - SWELLING FACE [None]
  - SWOLLEN TONGUE [None]
